FAERS Safety Report 10588054 (Version 3)
Quarter: 2014Q4

REPORT INFORMATION
  Report Type: Spontaneous
  Country: BR (occurrence: BR)
  Receive Date: 20141117
  Receipt Date: 20141126
  Transmission Date: 20150529
  Serious: Yes (Death)
  Sender: FDA-Public Use
  Company Number: BR-PFIZER INC-2014176306

PATIENT
  Age: 49 Year
  Sex: Female
  Weight: 45 kg

DRUGS (2)
  1. SUTENT [Suspect]
     Active Substance: SUNITINIB MALATE
     Indication: RENAL CELL CARCINOMA
     Dosage: 50 MG, ALTERNATE DAYS, CYCLIC 4X2
     Route: 048
     Dates: start: 20140612
  2. MORPHIN [Concomitant]
     Active Substance: MORPHINE
     Dosage: 30 MG, 2X/DAY (1 TABLET IN THE MORNING AND ANOTHER AT NIGHT)

REACTIONS (12)
  - Muscular weakness [Not Recovered/Not Resolved]
  - Hypophagia [Not Recovered/Not Resolved]
  - Mouth injury [Recovered/Resolved]
  - Flatulence [Not Recovered/Not Resolved]
  - Asthenia [Not Recovered/Not Resolved]
  - Ageusia [Recovered/Resolved]
  - Tongue injury [Not Recovered/Not Resolved]
  - Respiratory failure [Fatal]
  - Abdominal pain [Not Recovered/Not Resolved]
  - Bedridden [Not Recovered/Not Resolved]
  - Abdominal distension [Not Recovered/Not Resolved]
  - Feeling hot [Not Recovered/Not Resolved]

NARRATIVE: CASE EVENT DATE: 2014
